FAERS Safety Report 4586223-X (Version None)
Quarter: 2005Q1

REPORT INFORMATION
  Report Type: 
  Country: None (occurrence: None)
  Receive Date: 20050125
  Receipt Date: 20041116
  Transmission Date: 20050727
  Serious: No
  Sender: FDA-Public Use
  Company Number: US_0411108309

PATIENT
  Age: 62 Year
  Sex: Female
  Weight: 84 kg

DRUGS (5)
  1. FORTEO [Suspect]
     Dosage: 20 UG/1 DAY
     Dates: start: 20031001
  2. VITAMIN D [Concomitant]
  3. MULTI-VITAMIN [Concomitant]
  4. CALCIUM GLUCONATE [Concomitant]
  5. CITRICAL (CALCIUM CARBONATE) [Concomitant]

REACTIONS (5)
  - ABDOMINAL PAIN [None]
  - ABDOMINAL WALL DISORDER [None]
  - BLOOD CHOLESTEROL INCREASED [None]
  - GASTRITIS [None]
  - NEPHROLITHIASIS [None]
